FAERS Safety Report 9186128 (Version 10)
Quarter: 2014Q3

REPORT INFORMATION
  Report Type: Report from Study
  Country: US (occurrence: US)
  Receive Date: 20130325
  Receipt Date: 20140815
  Transmission Date: 20150326
  Serious: Yes (Hospitalization, Other)
  Sender: FDA-Public Use
  Company Number: US-GLAXOSMITHKLINE-A1000790A

PATIENT
  Sex: Male

DRUGS (6)
  1. ALBUTEROL. [Suspect]
     Active Substance: ALBUTEROL
     Indication: CHRONIC OBSTRUCTIVE PULMONARY DISEASE
     Route: 055
  2. PREDNISONE. [Suspect]
     Active Substance: PREDNISONE
     Indication: PRODUCT USED FOR UNKNOWN INDICATION
  3. OXYGEN. [Concomitant]
     Active Substance: OXYGEN
  4. DIABETES MEDICATION [Concomitant]
     Active Substance: UNSPECIFIED INGREDIENT
  5. NEBULIZER [Concomitant]
     Active Substance: UNSPECIFIED INGREDIENT
  6. ADVAIR HFA [Suspect]
     Active Substance: FLUTICASONE PROPIONATE\SALMETEROL XINAFOATE
     Indication: CHRONIC OBSTRUCTIVE PULMONARY DISEASE
     Route: 055

REACTIONS (28)
  - Pneumonia [Unknown]
  - Bed rest [Unknown]
  - Arterial occlusive disease [Unknown]
  - Cardiac disorder [Unknown]
  - Cardiac failure congestive [Unknown]
  - Hypersensitivity [Unknown]
  - Dyspnoea [Not Recovered/Not Resolved]
  - Malaise [Unknown]
  - Cough [Unknown]
  - Hypertension [Unknown]
  - Adverse event [Unknown]
  - Skin disorder [Unknown]
  - Erythema [Unknown]
  - Rash [Unknown]
  - Pulmonary mass [Unknown]
  - Dizziness [Unknown]
  - Visual acuity reduced [Unknown]
  - Catheterisation cardiac [Unknown]
  - Panic attack [Not Recovered/Not Resolved]
  - Pollakiuria [Unknown]
  - Dyspnoea exertional [Unknown]
  - Cardiomegaly [Unknown]
  - Sarcoidosis [Unknown]
  - Asthma [Unknown]
  - Chest pain [Unknown]
  - Type 2 diabetes mellitus [Unknown]
  - Muscle spasms [Not Recovered/Not Resolved]
  - Pulmonary function test decreased [Not Recovered/Not Resolved]
